FAERS Safety Report 25644113 (Version 2)
Quarter: 2025Q3

REPORT INFORMATION
  Report Type: Spontaneous
  Country: US (occurrence: US)
  Receive Date: 20250805
  Receipt Date: 20250930
  Transmission Date: 20251021
  Serious: No
  Sender: PFIZER
  Company Number: US-PFIZER INC-202400206290

PATIENT
  Age: 55 Year
  Sex: Female

DRUGS (3)
  1. LITFULO [Suspect]
     Active Substance: RITLECITINIB TOSYLATE
     Indication: Alopecia scarring
     Dosage: 50 MG, 1X/DAY (50MG CAPSULE ONCE DAILY)
  2. LITFULO [Suspect]
     Active Substance: RITLECITINIB TOSYLATE
     Indication: Alopecia areata
  3. LITFULO [Suspect]
     Active Substance: RITLECITINIB TOSYLATE
     Indication: Dermatitis

REACTIONS (3)
  - Amnesia [Unknown]
  - Drug ineffective for unapproved indication [Unknown]
  - Off label use [Unknown]
